FAERS Safety Report 9049350 (Version 1)
Quarter: 2013Q1

REPORT INFORMATION
  Report Type: Spontaneous
  Country: US (occurrence: US)
  Receive Date: 20130205
  Receipt Date: 20130205
  Transmission Date: 20140127
  Serious: Yes (Other)
  Sender: FDA-Public Use
  Company Number: US-ELI_LILLY_AND_COMPANY-US201301009570

PATIENT
  Sex: Female
  Weight: 74.38 kg

DRUGS (2)
  1. HUMALOG LISPRO [Suspect]
     Indication: DIABETES MELLITUS
     Dosage: UNK
     Route: 058
  2. SINOPRYL [Concomitant]
     Indication: BLOOD PRESSURE ABNORMAL

REACTIONS (13)
  - Pharyngeal oedema [Unknown]
  - Swollen tongue [Unknown]
  - Lip swelling [Unknown]
  - Hot flush [Unknown]
  - Lymphadenopathy [Unknown]
  - Hyperhidrosis [Unknown]
  - Candida infection [Unknown]
  - Acarodermatitis [Unknown]
  - Blood pressure increased [Unknown]
  - Blood glucose increased [Recovered/Resolved]
  - Weight increased [Recovered/Resolved]
  - Rash erythematous [Unknown]
  - Rash pruritic [Unknown]
